FAERS Safety Report 6524521-0 (Version None)
Quarter: 2010Q1

REPORT INFORMATION
  Report Type: 
  Country: None (occurrence: None)
  Receive Date: 20100104
  Receipt Date: 20091228
  Transmission Date: 20100710
  Serious: Yes (Other)
  Sender: FDA-Public Use
  Company Number: US-ROCHE-580961

PATIENT
  Age: 75 Year
  Sex: Female
  Weight: 81.8 kg

DRUGS (4)
  1. VALIUM [Suspect]
     Indication: ANXIETY
     Route: 065
  2. VALIUM [Suspect]
     Route: 065
  3. DIAZEPAM [Suspect]
     Indication: ANXIETY
     Route: 048
  4. DIAZEPAM [Suspect]
     Dosage: OTHER INDICATION: PANIC ATTACK DISORDER MUSCLE RELAXER
     Route: 048

REACTIONS (3)
  - DRUG INEFFECTIVE [None]
  - MUSCLE SPASMS [None]
  - NO ADVERSE EVENT [None]
